FAERS Safety Report 19584787 (Version 11)
Quarter: 2022Q2

REPORT INFORMATION
  Report Type: Report from Study
  Country: DE (occurrence: DE)
  Receive Date: 20210720
  Receipt Date: 20220630
  Transmission Date: 20220721
  Serious: Yes (Other)
  Sender: FDA-Public Use
  Company Number: DE-PFM-2021-06077

PATIENT
  Age: 50 Year
  Sex: Female

DRUGS (12)
  1. ENCORAFENIB [Suspect]
     Active Substance: ENCORAFENIB
     Indication: Metastatic malignant melanoma
     Dosage: 450 MG, 1X PER DAY
     Route: 048
     Dates: start: 20201023
  2. ENCORAFENIB [Suspect]
     Active Substance: ENCORAFENIB
     Dosage: 450 MG, QD (1/DAY)
     Route: 048
     Dates: start: 20201109
  3. BINIMETINIB [Suspect]
     Active Substance: BINIMETINIB
     Indication: Metastatic malignant melanoma
     Dosage: 45 MG, BID (2/DAY)
     Route: 048
     Dates: start: 20201023
  4. BINIMETINIB [Suspect]
     Active Substance: BINIMETINIB
     Dosage: 45 MG, BID (2/DAY)
     Route: 048
     Dates: start: 20201109
  5. MAGNESIUM [Concomitant]
     Active Substance: MAGNESIUM
     Indication: Metastatic malignant melanoma
     Dosage: UNK
     Route: 065
     Dates: start: 202006
  6. PANTOPRAZOLE SODIUM [Concomitant]
     Active Substance: PANTOPRAZOLE SODIUM
     Indication: Prophylaxis
     Dosage: UNK
     Route: 065
  7. CITALOPRAM [Concomitant]
     Active Substance: CITALOPRAM HYDROBROMIDE
     Indication: Depression
     Dosage: UNK
     Route: 065
  8. RESONIUM [Concomitant]
     Active Substance: SODIUM POLYSTYRENE SULFONATE
     Indication: Hyperkalaemia
     Dosage: UNK
     Route: 065
     Dates: start: 20201211, end: 20210402
  9. RESONIUM [Concomitant]
     Active Substance: SODIUM POLYSTYRENE SULFONATE
     Indication: Chronic kidney disease
  10. VELTASSA [Concomitant]
     Active Substance: PATIROMER
     Indication: Hyperkalaemia
     Dosage: UNK
     Route: 065
     Dates: start: 20210204
  11. VELTASSA [Concomitant]
     Active Substance: PATIROMER
     Indication: Chronic kidney disease
  12. SODIUM BICARBONATE [Concomitant]
     Active Substance: SODIUM BICARBONATE
     Indication: Acidosis
     Dosage: UNK
     Route: 065
     Dates: start: 20210106

REACTIONS (10)
  - Chronic kidney disease [Recovering/Resolving]
  - Hyperkalaemia [Recovered/Resolved]
  - Abdominal pain [Recovered/Resolved]
  - Nausea [Recovered/Resolved]
  - Diarrhoea [Recovering/Resolving]
  - Vision blurred [Recovering/Resolving]
  - Fatigue [Recovering/Resolving]
  - Iron deficiency [Recovering/Resolving]
  - Back pain [Recovering/Resolving]
  - Oedema peripheral [Recovering/Resolving]

NARRATIVE: CASE EVENT DATE: 20201109
